FAERS Safety Report 14976621 (Version 1)
Quarter: 2018Q2

REPORT INFORMATION
  Report Type: Report from Study
  Country: US (occurrence: US)
  Receive Date: 20180605
  Receipt Date: 20180605
  Transmission Date: 20180711
  Serious: Yes (Hospitalization)
  Sender: FDA-Public Use
  Company Number: US-ACTELION-A-US2018-172172

PATIENT
  Age: 32 Year
  Sex: Male

DRUGS (1)
  1. OPSUMIT [Suspect]
     Active Substance: MACITENTAN
     Indication: PULMONARY HYPERTENSION
     Dosage: UNK
     Route: 048
     Dates: start: 20180501, end: 20180509

REACTIONS (4)
  - Dehydration [Not Recovered/Not Resolved]
  - Fluid overload [Not Recovered/Not Resolved]
  - Therapeutic response decreased [Unknown]
  - Pain [Unknown]

NARRATIVE: CASE EVENT DATE: 20180503
